FAERS Safety Report 8009310-2 (Version None)
Quarter: 2011Q4

REPORT INFORMATION
  Report Type: 
  Country: None (occurrence: None)
  Receive Date: 20111227
  Receipt Date: 20111221
  Transmission Date: 20120403
  Serious: Yes (Disabling, Congenital Anomaly, Other)
  Sender: FDA-Public Use
  Company Number: US-CEPHALON-2011002332

PATIENT
  Sex: Female
  Weight: 4 kg

DRUGS (2)
  1. PROVIGIL [Suspect]
     Route: 064
  2. AVONEX [Suspect]
     Route: 064

REACTIONS (10)
  - MARCUS GUNN SYNDROME [None]
  - LACTOSE INTOLERANCE [None]
  - EYELID PTOSIS CONGENITAL [None]
  - LUNG DISORDER [None]
  - ATRIAL SEPTAL DEFECT [None]
  - CONGENITAL TORTICOLLIS [None]
  - DEVELOPMENTAL DELAY [None]
  - GASTROOESOPHAGEAL REFLUX DISEASE [None]
  - LARYNGOMALACIA [None]
  - DYSPHAGIA [None]
